FAERS Safety Report 14374713 (Version 2)
Quarter: 2018Q1

REPORT INFORMATION
  Report Type: Other
  Country: DE (occurrence: DE)
  Receive Date: 20180111
  Receipt Date: 20180312
  Transmission Date: 20180509
  Serious: Yes (Hospitalization)
  Sender: FDA-Public Use
  Company Number: DE-LUPIN PHARMACEUTICALS INC.-2018-00065

PATIENT
  Age: 28 Year
  Sex: Female

DRUGS (19)
  1. ABILIFY [Suspect]
     Active Substance: ARIPIPRAZOLE
     Dosage: 10 MG, QD
     Route: 065
     Dates: start: 20140620
  2. ABILIFY [Suspect]
     Active Substance: ARIPIPRAZOLE
     Dosage: 15 MG, QD
     Route: 065
     Dates: start: 20140621, end: 20140622
  3. LYOGEN                             /00000601/ [Suspect]
     Active Substance: FLUPHENAZINE
     Dosage: 3 MG, QD
     Route: 065
     Dates: start: 20140708
  4. AKINETON [Concomitant]
     Active Substance: BIPERIDEN HYDROCHLORIDE
     Indication: PRODUCT USED FOR UNKNOWN INDICATION
     Dosage: 4 MG, QD
     Route: 065
     Dates: start: 20140711, end: 20140714
  5. SERTRALINE [Suspect]
     Active Substance: SERTRALINE HYDROCHLORIDE
     Indication: SCHIZOAFFECTIVE DISORDER
     Dosage: 25 MG, QD
     Route: 065
     Dates: start: 20140710, end: 20140723
  6. ABILIFY [Suspect]
     Active Substance: ARIPIPRAZOLE
     Dosage: 20 MG, QD
     Route: 065
     Dates: start: 20140623, end: 20140624
  7. SOLIAN [Suspect]
     Active Substance: AMISULPRIDE
     Dosage: 200 MG, QD
     Route: 048
     Dates: start: 20140626
  8. LYOGEN                             /00000601/ [Suspect]
     Active Substance: FLUPHENAZINE
     Dosage: 6 MG, QD
     Route: 048
     Dates: start: 20140709, end: 20140727
  9. AKINETON [Concomitant]
     Active Substance: BIPERIDEN HYDROCHLORIDE
     Dosage: 6 MG, UNK
     Route: 065
     Dates: start: 20140715
  10. FLUPHENAZINE [Suspect]
     Active Substance: FLUPHENAZINE
     Indication: SCHIZOAFFECTIVE DISORDER
     Dosage: 3 MG, QD
     Route: 048
     Dates: start: 20140708
  11. FLUPHENAZINE [Suspect]
     Active Substance: FLUPHENAZINE
     Dosage: 9 MG, QD
     Route: 048
     Dates: start: 20140728
  12. SOLIAN [Suspect]
     Active Substance: AMISULPRIDE
     Indication: SCHIZOAFFECTIVE DISORDER
     Dosage: UNK
     Route: 048
     Dates: start: 20140709
  13. AKINETON [Concomitant]
     Active Substance: BIPERIDEN HYDROCHLORIDE
     Dosage: UNK
     Route: 065
     Dates: start: 20140711, end: 20140714
  14. SERTRALINE [Suspect]
     Active Substance: SERTRALINE HYDROCHLORIDE
     Dosage: 75 MG, UNK
     Route: 065
     Dates: start: 20140729
  15. ABILIFY [Suspect]
     Active Substance: ARIPIPRAZOLE
     Indication: SCHIZOAFFECTIVE DISORDER
     Dosage: 5 MG, QD
     Route: 065
     Dates: start: 20140611, end: 20140619
  16. ABILIFY [Suspect]
     Active Substance: ARIPIPRAZOLE
     Dosage: 30 MG, QD
     Route: 065
     Dates: start: 20140625, end: 20140626
  17. SOLIAN [Suspect]
     Active Substance: AMISULPRIDE
     Dosage: 600 MG, QD
     Route: 048
     Dates: start: 20140627, end: 20140707
  18. LYOGEN                             /00000601/ [Suspect]
     Active Substance: FLUPHENAZINE
     Indication: SCHIZOAFFECTIVE DISORDER
     Dosage: 9 MG, QD
     Route: 065
     Dates: start: 20140728
  19. ABILIFY [Suspect]
     Active Substance: ARIPIPRAZOLE
     Dosage: UNK UNK, QD
     Route: 065
     Dates: start: 20140629

REACTIONS (6)
  - Accommodation disorder [Recovered/Resolved]
  - Flatulence [Recovered/Resolved]
  - Musculoskeletal stiffness [Recovered/Resolved]
  - Underdose [Unknown]
  - Constipation [Recovered/Resolved]
  - Blood prolactin increased [Recovering/Resolving]

NARRATIVE: CASE EVENT DATE: 20140612
